FAERS Safety Report 5682364-4 (Version None)
Quarter: 2008Q1

REPORT INFORMATION
  Report Type: 
  Country: None (occurrence: None)
  Receive Date: 20080327
  Receipt Date: 20080318
  Transmission Date: 20080703
  Serious: Yes (Other)
  Sender: FDA-Public Use
  Company Number: US-JNJFOC-20080304825

PATIENT
  Sex: Female
  Weight: 48.54 kg

DRUGS (3)
  1. REMICADE [Suspect]
     Route: 042
  2. REMICADE [Suspect]
     Indication: CROHN'S DISEASE
     Route: 042
  3. ANTIBIOTICS [Concomitant]

REACTIONS (2)
  - ABDOMINAL PAIN UPPER [None]
  - FISTULA [None]
